FAERS Safety Report 9821910 (Version 1)
Quarter: 2014Q1

REPORT INFORMATION
  Report Type: Spontaneous
  Country: US (occurrence: None)
  Receive Date: 20140114
  Receipt Date: 20140114
  Transmission Date: 20141002
  Serious: Yes (Hospitalization)
  Sender: FDA-Public Use
  Company Number: CC400204342

PATIENT
  Sex: 0

DRUGS (1)
  1. HESPAN [Suspect]
     Indication: ATRIAL FIBRILLATION
     Route: 042
     Dates: start: 20131217

REACTIONS (3)
  - Wrong drug administered [None]
  - Cardiac failure congestive [None]
  - Condition aggravated [None]
